FAERS Safety Report 8709994 (Version 2)
Quarter: 2013Q4

REPORT INFORMATION
  Report Type: Spontaneous
  Country: US (occurrence: US)
  Receive Date: 20120806
  Receipt Date: 20131105
  Transmission Date: 20140711
  Serious: Yes (Disabling, Other)
  Sender: FDA-Public Use
  Company Number: US-009507513-1207USA011264

PATIENT
  Age: 71 Year
  Sex: Male

DRUGS (39)
  1. ZOCOR [Suspect]
  2. PROSCAR [Suspect]
  3. GLUCOPHAGE [Suspect]
  4. METFORMIN HYDROCHLORIDE [Suspect]
  5. LOTRIMIN [Suspect]
  6. MOTRIN [Suspect]
  7. VIAGRA [Suspect]
  8. LIPITOR [Suspect]
  9. TRAMADOL HYDROCHLORIDE [Suspect]
  10. ADVIL [Suspect]
  11. COREG [Suspect]
  12. LUVOX [Suspect]
  13. PROZAC [Suspect]
  14. RESTASIS [Suspect]
  15. ZETIA [Suspect]
  16. REGLAN [Suspect]
  17. TOPROL XL TABLETS [Suspect]
  18. XALATAN [Suspect]
     Route: 047
  19. PLAVIX [Suspect]
  20. METOPROLOL TARTRATE [Suspect]
  21. THERATEARS [Concomitant]
  22. ALLOPURINOL [Concomitant]
  23. ASPIRIN [Concomitant]
  24. VICODIN [Concomitant]
  25. OXYCODONE [Concomitant]
  26. LOSARTAN POTASSIUM [Concomitant]
  27. DIGOXIN [Concomitant]
  28. FOLIC ACID [Concomitant]
  29. OMEGA-3 MARINE TRIGLYCERIDES [Concomitant]
  30. DIAZEPAM [Concomitant]
  31. CLOZAPINE [Concomitant]
  32. BILBERRY [Concomitant]
  33. PILOCARPINE [Concomitant]
  34. ISTALOL [Concomitant]
     Dosage: 1 DF, UNK
  35. PRAVASTATIN SODIUM [Concomitant]
  36. FUROSEMIDE [Concomitant]
  37. POTASSIUM CHLORIDE [Concomitant]
  38. LANTUS [Concomitant]
     Dosage: 12 IU, UNK
  39. LUMIGAN [Concomitant]

REACTIONS (13)
  - Blood glucose increased [Unknown]
  - Constipation [Unknown]
  - Asthenia [Unknown]
  - Drug hypersensitivity [Unknown]
  - Insomnia [Unknown]
  - Abasia [Unknown]
  - Dyspnoea [Unknown]
  - Nausea [Unknown]
  - Back pain [Unknown]
  - Myalgia [Unknown]
  - Fatigue [Unknown]
  - Vomiting [Unknown]
  - Skin irritation [Unknown]
